FAERS Safety Report 10412498 (Version 1)
Quarter: 2014Q3

REPORT INFORMATION
  Report Type: Spontaneous
  Country: US (occurrence: US)
  Receive Date: 20140827
  Receipt Date: 20140827
  Transmission Date: 20150326
  Serious: Yes (Congenital Anomaly, Other)
  Sender: FDA-Public Use
  Company Number: US-ELI_LILLY_AND_COMPANY-US201408006073

PATIENT
  Age: 0 Day
  Sex: Female

DRUGS (2)
  1. PROZAC [Suspect]
     Active Substance: FLUOXETINE HYDROCHLORIDE
     Indication: PRODUCT USED FOR UNKNOWN INDICATION
     Dosage: UNK UNK, UNKNOWN
     Route: 064
     Dates: start: 200305, end: 200401
  2. PROZAC [Suspect]
     Active Substance: FLUOXETINE HYDROCHLORIDE
     Indication: PRODUCT USED FOR UNKNOWN INDICATION
     Dosage: UNK UNK, UNKNOWN
     Route: 064
     Dates: start: 200305, end: 200401

REACTIONS (4)
  - Mitral valve prolapse [Unknown]
  - Foetal exposure during pregnancy [Unknown]
  - Congenital aortic anomaly [Unknown]
  - Injury [Unknown]

NARRATIVE: CASE EVENT DATE: 20030910
